FAERS Safety Report 23942615 (Version 1)
Quarter: 2024Q2

REPORT INFORMATION
  Report Type: Spontaneous
  Country: US (occurrence: US)
  Receive Date: 20240605
  Receipt Date: 20240605
  Transmission Date: 20240716
  Serious: Yes (Other)
  Sender: FDA-Public Use
  Company Number: US-BRISTOL-MYERS SQUIBB COMPANY-2024-089138

PATIENT
  Age: 62 Year
  Sex: Male

DRUGS (2)
  1. IPILIMUMAB [Suspect]
     Active Substance: IPILIMUMAB
     Indication: Metastatic mesothelioma
  2. NIVOLUMAB [Suspect]
     Active Substance: NIVOLUMAB
     Indication: Metastatic mesothelioma

REACTIONS (4)
  - Immune-mediated myositis [Recovering/Resolving]
  - Myasthenic syndrome [Recovering/Resolving]
  - Immune-mediated hepatitis [Unknown]
  - Immune-mediated myocarditis [Unknown]
